FAERS Safety Report 5660292-8 (Version None)
Quarter: 2008Q1

REPORT INFORMATION
  Report Type: 
  Country: None (occurrence: None)
  Receive Date: 20080214
  Receipt Date: 20071212
  Transmission Date: 20080703
  Serious: No
  Sender: FDA-Public Use
  Company Number: WAES 0712USA08583

PATIENT
  Age: 54 Year
  Sex: Female

DRUGS (10)
  1. ISENTRESS [Suspect]
     Indication: HIV INFECTION
     Dosage: 400 MG/BID/PO
     Route: 048
     Dates: start: 20061205
  2. ATENOLOL [Concomitant]
  3. DARUNAVIR [Concomitant]
  4. EMTRICITABINE (+) TENOFOVIR DISO [Concomitant]
  5. INSULIN [Concomitant]
  6. ISOSORBIDE DINITRATE [Concomitant]
  7. LISINOPRIL [Concomitant]
  8. PYRIDOXINE [Concomitant]
  9. RITONAVIR [Concomitant]
  10. MULTI-VITAMINS [Concomitant]

REACTIONS (4)
  - BLOOD CHOLESTEROL INCREASED [None]
  - GLYCOSYLATED HAEMOGLOBIN DECREASED [None]
  - HIGH DENSITY LIPOPROTEIN INCREASED [None]
  - LOW DENSITY LIPOPROTEIN INCREASED [None]
